FAERS Safety Report 16046778 (Version 1)
Quarter: 2019Q1

REPORT INFORMATION
  Report Type: Spontaneous
  Country: US (occurrence: US)
  Receive Date: 20190207
  Receipt Date: 20190207
  Transmission Date: 20190418
  Serious: No
  Sender: FDA-Public Use
  Company Number: None

PATIENT
  Age: 48 Year
  Sex: Female

DRUGS (1)
  1. OCTREOTIDE PFS 100MCG/ML [Suspect]
     Active Substance: OCTREOTIDE ACETATE
     Indication: ABNORMAL LOSS OF WEIGHT
     Dosage: ?          OTHER STRENGTH:100 UG/ML;?
     Route: 058
     Dates: start: 201804

REACTIONS (1)
  - Needle issue [None]

NARRATIVE: CASE EVENT DATE: 20190207
